FAERS Safety Report 7522459-3 (Version None)
Quarter: 2011Q2

REPORT INFORMATION
  Report Type: 
  Country: None (occurrence: None)
  Receive Date: 20110603
  Receipt Date: 20110527
  Transmission Date: 20111010
  Serious: Yes (Hospitalization, Other)
  Sender: FDA-Public Use
  Company Number: AR-AMGEN-ARGSP2011022994

PATIENT
  Age: 67 Year
  Sex: Male
  Weight: 70 kg

DRUGS (5)
  1. ENBREL [Suspect]
     Dosage: UNK
     Dates: start: 20110301
  2. ENBREL [Suspect]
     Dosage: 50 MG, WEEKLY
     Route: 058
     Dates: start: 20050101, end: 20101101
  3. CORTICOSTEROIDS [Concomitant]
     Dosage: UNK
  4. ACETYLCYSTEINE [Concomitant]
     Dosage: UNK
  5. ENBREL [Suspect]
     Indication: RHEUMATOID ARTHRITIS
     Dosage: UNK
     Dates: end: 20100101

REACTIONS (2)
  - NOSOCOMIAL INFECTION [None]
  - FOOT DEFORMITY [None]
